FAERS Safety Report 6682262-3 (Version None)
Quarter: 2010Q2

REPORT INFORMATION
  Report Type: 
  Country: None (occurrence: None)
  Receive Date: 20100414
  Receipt Date: 20100414
  Transmission Date: 20101027
  Serious: Yes (Other)
  Sender: FDA-Public Use
  Company Number: None

PATIENT

DRUGS (2)
  1. QUELICIN [Suspect]
     Indication: ELECTROCONVULSIVE THERAPY
     Dosage: 100 MG
     Dates: start: 20100402
  2. QUELICIN [Suspect]
     Indication: MUSCLE RELAXANT THERAPY
     Dosage: 100 MG
     Dates: start: 20100402

REACTIONS (1)
  - PRODUCT MEASURED POTENCY ISSUE [None]
